FAERS Safety Report 14940602 (Version 1)
Quarter: 2018Q2

REPORT INFORMATION
  Report Type: Spontaneous
  Country: US (occurrence: US)
  Receive Date: 20180525
  Receipt Date: 20180525
  Transmission Date: 20180711
  Serious: No
  Sender: FDA-Public Use
  Company Number: US-009507513-1805USA008526

PATIENT
  Sex: Male

DRUGS (1)
  1. BRIDION [Suspect]
     Active Substance: SUGAMMADEX
     Indication: NEUROMUSCULAR BLOCKADE REVERSAL
     Dosage: UNK UNK, ONCE
     Route: 042
     Dates: start: 2017, end: 2017

REACTIONS (1)
  - Airway remodelling [Recovered/Resolved]

NARRATIVE: CASE EVENT DATE: 2017
